FAERS Safety Report 23585432 (Version 1)
Quarter: 2024Q1

REPORT INFORMATION
  Report Type: Report from Study
  Country: CA (occurrence: CA)
  Receive Date: 20240301
  Receipt Date: 20240301
  Transmission Date: 20240410
  Serious: Yes (Death, Other)
  Sender: FDA-Public Use
  Company Number: CA-GLAXOSMITHKLINE-CA2022020577

PATIENT

DRUGS (4)
  1. MEPOLIZUMAB [Suspect]
     Active Substance: MEPOLIZUMAB
     Indication: Asthma
     Dosage: 100 MG, Q4W,(EVERY 4 WEEKS)
     Route: 058
     Dates: start: 20180326
  2. MEPOLIZUMAB [Suspect]
     Active Substance: MEPOLIZUMAB
     Indication: Asthma
     Dosage: 100 MG, Q4W,(EVERY 4 WEEKS)
     Route: 058
     Dates: start: 20180326
  3. SINGULAIR [Concomitant]
     Active Substance: MONTELUKAST SODIUM
     Indication: Product used for unknown indication
     Dosage: UNK
     Dates: start: 2007
  4. BREO ELLIPTA [Concomitant]
     Active Substance: FLUTICASONE FUROATE\VILANTEROL TRIFENATATE
     Indication: Product used for unknown indication
     Dosage: 1 DF, QD (1 TIME IN THE MORNING)
     Dates: start: 2007

REACTIONS (6)
  - Death [Fatal]
  - Asthma [Unknown]
  - Nasopharyngitis [Unknown]
  - Nocturnal dyspnoea [Unknown]
  - Dyspnoea [Unknown]
  - Wheezing [Unknown]

NARRATIVE: CASE EVENT DATE: 20220203
